FAERS Safety Report 20684601 (Version 3)
Quarter: 2022Q3

REPORT INFORMATION
  Report Type: Spontaneous
  Country: US (occurrence: US)
  Receive Date: 20220407
  Receipt Date: 20220708
  Transmission Date: 20221026
  Serious: No
  Sender: FDA-Public Use
  Company Number: US-PFIZER INC-202101807540

PATIENT
  Age: 45 Year
  Sex: Female
  Weight: 98 kg

DRUGS (4)
  1. IBRANCE [Suspect]
     Active Substance: PALBOCICLIB
     Indication: Breast cancer
     Dosage: 125 MG, CYCLIC (ONE TABLET ONCE DAILY 21 DAYS ON 7 DAYS OFF)
     Dates: start: 20200114
  2. IBRANCE [Suspect]
     Active Substance: PALBOCICLIB
     Dosage: 125 MG, CYCLIC (TAKE ONE BY MOUTH DAILY FOR THREE WEEKS THEN ONE WEEK OFF)
     Route: 048
  3. LUPRON [Concomitant]
     Active Substance: LEUPROLIDE ACETATE
     Dosage: UNK
  4. FASLODEX [Concomitant]
     Active Substance: FULVESTRANT
     Dosage: UNK

REACTIONS (2)
  - Breast conserving surgery [Unknown]
  - Neoplasm progression [Unknown]
